FAERS Safety Report 18569856 (Version 1)
Quarter: 2020Q4

REPORT INFORMATION
  Report Type: Spontaneous
  Country: US (occurrence: US)
  Receive Date: 20201201
  Receipt Date: 20201201
  Transmission Date: 20210114
  Serious: Yes (Hospitalization)
  Sender: FDA-Public Use
  Company Number: None

PATIENT
  Age: 74 Year
  Sex: Female

DRUGS (8)
  1. XELJANZ XR [Suspect]
     Active Substance: TOFACITINIB CITRATE
     Indication: RHEUMATOID ARTHRITIS
     Route: 048
     Dates: start: 20200825
  2. ROPINEROLE [Concomitant]
     Active Substance: ROPINIROLE
  3. DIPHEN/ATROP [Concomitant]
     Active Substance: ATROPINE SULFATE\DIPHENOXYLATE
  4. BUDESONIDE. [Concomitant]
     Active Substance: BUDESONIDE
  5. TRELEGY ELLIPTA [Concomitant]
     Active Substance: FLUTICASONE FUROATE\UMECLIDINIUM BROMIDE\VILANTEROL TRIFENATATE
  6. ESTRADIOL. [Concomitant]
     Active Substance: ESTRADIOL
  7. FAMOTIDINE. [Concomitant]
     Active Substance: FAMOTIDINE
  8. PROGESTERONE. [Concomitant]
     Active Substance: PROGESTERONE

REACTIONS (2)
  - Spinal disorder [None]
  - Infection [None]

NARRATIVE: CASE EVENT DATE: 20201108
